FAERS Safety Report 4947644-6 (Version None)
Quarter: 2006Q1

REPORT INFORMATION
  Report Type: 
  Country: None (occurrence: None)
  Receive Date: 20060314
  Receipt Date: 20060309
  Transmission Date: 20060701
  Serious: Yes (Hospitalization)
  Sender: FDA-Public Use
  Company Number: 2005RL000140

PATIENT
  Age: 79 Year
  Sex: Female
  Weight: 53.5244 kg

DRUGS (21)
  1. PROPAFENONE HCL [Suspect]
     Indication: ATRIAL FIBRILLATION
     Dosage: 225 MG; BID; PO
     Route: 048
     Dates: start: 20050810, end: 20050913
  2. LOVENOX [Concomitant]
  3. CALAN - SLOW RELEASE [Concomitant]
  4. LEVAQUIN [Concomitant]
  5. EVISTA [Concomitant]
  6. GLUCOSAMINE [Concomitant]
  7. CALCIUM GLUCONATE [Concomitant]
  8. VITAMIN E [Concomitant]
  9. AMOXIL [Concomitant]
  10. LOPRESSOR [Concomitant]
  11. LASIX [Concomitant]
  12. TYLENOL [Concomitant]
  13. COUMADIN [Concomitant]
  14. AMBIEN [Concomitant]
  15. DIPRIVAN [Concomitant]
  16. DARVOCET [Concomitant]
  17. CALAN - SLOW RELEASE [Concomitant]
  18. DIGOXIN [Concomitant]
  19. ASPIRIN [Concomitant]
  20. DILTIAZEM ^STADA^ - SLOW RELEASE [Concomitant]
  21. DILTIAZEM [Concomitant]

REACTIONS (10)
  - ATRIAL FIBRILLATION [None]
  - BRADYCARDIA [None]
  - CONSTIPATION [None]
  - DIZZINESS [None]
  - ELECTROCARDIOGRAM ABNORMAL [None]
  - FATIGUE [None]
  - GASTROOESOPHAGEAL REFLUX DISEASE [None]
  - HYPOKALAEMIA [None]
  - INTERNATIONAL NORMALISED RATIO INCREASED [None]
  - PALPITATIONS [None]
